FAERS Safety Report 9767678 (Version 2)
Quarter: 2013Q4

REPORT INFORMATION
  Report Type: Spontaneous
  Country: CA (occurrence: None)
  Receive Date: 20130828
  Receipt Date: 20131030
  Transmission Date: 20140711
  Serious: Yes (Death)
  Sender: FDA-Public Use
  Company Number: 2013P1018844

PATIENT
  Age: 65 Year
  Sex: Female

DRUGS (15)
  1. PLAQUENIL [Suspect]
     Dates: start: 201102, end: 201102
  2. REMICADE (INFLIXIMAB) [Suspect]
     Indication: RHEUMATOID ARTHRITIS
     Route: 042
     Dates: start: 20070507
  3. ARAVA [Concomitant]
  4. ATROVENT [Concomitant]
  5. CALCIUM [Concomitant]
  6. FLOVENT (FLUTICASONE PROPIONATE) [Concomitant]
  7. FOLIC ACID [Concomitant]
  8. HYDROCHLOROTHIAZIDE (HCTZ) [Concomitant]
  9. MAVIK [Concomitant]
  10. MAXIDEX [Concomitant]
  11. MORPHINE [Concomitant]
  12. REACTINE [Concomitant]
  13. TRAMACET [Concomitant]
  14. VITAMIN B12 [Concomitant]
  15. VITAMIN D (ERGOCALCIFEROL) [Concomitant]

REACTIONS (6)
  - Blood pressure increased [None]
  - Cataract [None]
  - Dyspnoea [None]
  - Neuropathy peripheral [None]
  - Respiratory rate increased [None]
  - Wheezing [None]
